FAERS Safety Report 5821143-1 (Version None)
Quarter: 2008Q3

REPORT INFORMATION
  Report Type: 
  Country: None (occurrence: None)
  Receive Date: 20080721
  Receipt Date: 20080708
  Transmission Date: 20090109
  Serious: Yes (Other)
  Sender: FDA-Public Use
  Company Number: 030851

PATIENT
  Sex: Female

DRUGS (6)
  1. AYGESTIN [Suspect]
     Dosage: ORAL
     Route: 048
     Dates: start: 19880101, end: 19970101
  2. PREMARIN [Suspect]
     Dosage: ORAL
     Route: 048
     Dates: start: 19880101, end: 19971001
  3. PROVERA [Suspect]
     Dosage: ORAL
     Route: 048
     Dates: start: 19880101, end: 19970101
  4. PREMPRO [Suspect]
     Dosage: ORAL
     Route: 048
     Dates: start: 19880101, end: 19971001
  5. ESTRACE [Suspect]
     Dosage: ORAL
     Route: 048
     Dates: start: 19880101, end: 19971001
  6. MEDROXYPROGESTERONE [Suspect]
     Dosage: ORAL
     Route: 048
     Dates: start: 19880101, end: 19971001

REACTIONS (1)
  - BREAST CANCER [None]
